FAERS Safety Report 15491942 (Version 4)
Quarter: 2018Q4

REPORT INFORMATION
  Report Type: Spontaneous
  Country: JP (occurrence: JP)
  Receive Date: 20181012
  Receipt Date: 20181231
  Transmission Date: 20190205
  Serious: Yes (Hospitalization, Disabling, Other)
  Sender: FDA-Public Use
  Company Number: JP-AMGEN-JPNSP2018143338

PATIENT
  Age: 79 Year
  Sex: Female
  Weight: 52 kg

DRUGS (12)
  1. MIRCERA [Concomitant]
     Active Substance: METHOXY POLYETHYLENE GLYCOL-EPOETIN BETA
     Indication: NEPHROGENIC ANAEMIA
     Dosage: 100 MG, UNK
     Route: 058
     Dates: start: 20180929, end: 20180929
  2. FUROSEMIDE. [Suspect]
     Active Substance: FUROSEMIDE
     Indication: CARDIAC FAILURE CONGESTIVE
     Dosage: 40 MG, QD
     Route: 042
     Dates: start: 20180929, end: 20181005
  3. HUMULIN R [Concomitant]
     Active Substance: INSULIN HUMAN
     Indication: HYPERKALAEMIA
     Dosage: 10 UNIT, UNK
     Route: 042
     Dates: start: 20180929, end: 20180929
  4. SOLDEM 6 [Concomitant]
     Indication: RENAL FAILURE
     Dosage: 500 ML, UNK
     Route: 042
     Dates: start: 20180929, end: 20181005
  5. PRALIA [Suspect]
     Active Substance: DENOSUMAB
     Indication: OSTEOPOROSIS
     Dosage: 60 MG, UNK
     Route: 058
     Dates: end: 20180821
  6. CALCITRIOL. [Concomitant]
     Active Substance: CALCITRIOL
     Dosage: 0.5 MUG, QD
     Route: 065
     Dates: start: 20181005
  7. DENOTAS [Concomitant]
     Active Substance: CALCIUM CARBONATE\CHOLECALCIFEROL\MAGNESIUM CARBONATE
     Indication: PRODUCT USED FOR UNKNOWN INDICATION
     Dosage: UNK
     Route: 065
  8. GLUCOSE [Concomitant]
     Active Substance: DEXTROSE
     Indication: HYPERKALAEMIA
     Dosage: 20 MG, UNK
     Route: 042
     Dates: start: 20180929, end: 20180929
  9. OMEPRAZOLE. [Concomitant]
     Active Substance: OMEPRAZOLE
     Dosage: 20 MG, UNK
     Route: 042
     Dates: start: 20180929
  10. CALCITRIOL. [Concomitant]
     Active Substance: CALCITRIOL
     Dosage: 0.25 MUG, QD
     Route: 065
     Dates: end: 20181004
  11. TRANEXAMIC ACID. [Concomitant]
     Active Substance: TRANEXAMIC ACID
     Indication: ANAEMIA
     Dosage: 1 G, UNK
     Route: 042
     Dates: start: 20180929, end: 20181005
  12. CARBAZOCHROME SODIUM SULFONATE [Concomitant]
     Active Substance: CARBAZOCHROME SODIUM SULFONATE
     Indication: ANAEMIA
     Dosage: 10 ML, UNK
     Route: 042
     Dates: start: 20180929, end: 20181005

REACTIONS (3)
  - Acidosis [Unknown]
  - Hypocalcaemia [Recovering/Resolving]
  - Acute kidney injury [Unknown]

NARRATIVE: CASE EVENT DATE: 20181004
